FAERS Safety Report 20195621 (Version 3)
Quarter: 2022Q1

REPORT INFORMATION
  Report Type: Spontaneous
  Country: US (occurrence: US)
  Receive Date: 20211216
  Receipt Date: 20220217
  Transmission Date: 20220423
  Serious: No
  Sender: FDA-Public Use
  Company Number: US-PFIZER INC-202101758237

PATIENT
  Age: 23 Year
  Sex: Male
  Weight: 70.85 kg

DRUGS (6)
  1. GENOTROPIN [Suspect]
     Active Substance: SOMATROPIN
     Indication: Blood growth hormone
     Dosage: UNK
  2. GENOTROPIN [Suspect]
     Active Substance: SOMATROPIN
     Dosage: 0.2 UNK, 1X/DAY (ONCE A DAY AS WELL THREE DAYS A WEEK)
     Dates: start: 20210616
  3. GENOTROPIN [Suspect]
     Active Substance: SOMATROPIN
     Dosage: 0.4 UNK, 2X/WEEK (0.4 THEN 0.2 INJECTED AS ALTERNATING DOSE)
     Dates: start: 20210616
  4. GENOTROPIN [Suspect]
     Active Substance: SOMATROPIN
     Dosage: 0.2 MG, DAILY (ALTERNATING 0.2 AND 0.4 MG DAILY)
  5. GENOTROPIN [Suspect]
     Active Substance: SOMATROPIN
     Dosage: 0.2 MG, DAILY (ALTERNATING 0.2 AND 0.4 MG DAILY)
  6. GENOTROPIN [Suspect]
     Active Substance: SOMATROPIN
     Dosage: 0.4 MG, DAILY (ALTERNATING 0.2 AND 0.4 MG DAILY))

REACTIONS (3)
  - Drug dose omission by device [Unknown]
  - Wrong technique in device usage process [Unknown]
  - Device mechanical issue [Unknown]

NARRATIVE: CASE EVENT DATE: 20211208
